FAERS Safety Report 6209924-6 (Version None)
Quarter: 2009Q2

REPORT INFORMATION
  Report Type: 
  Country: None (occurrence: None)
  Receive Date: 20090601
  Receipt Date: 20090520
  Transmission Date: 20091009
  Serious: Yes (Other)
  Sender: FDA-Public Use
  Company Number: IE-PFIZER INC-2009215786

PATIENT
  Age: 63 Year

DRUGS (1)
  1. LINEZOLID [Suspect]
     Indication: ENDOCARDITIS
     Dosage: 600 MG, 2X/DAY

REACTIONS (2)
  - ENDOPHTHALMITIS [None]
  - STAPHYLOCOCCAL INFECTION [None]
